FAERS Safety Report 6809956-0 (Version None)
Quarter: 2010Q2

REPORT INFORMATION
  Report Type: 
  Country: None (occurrence: None)
  Receive Date: 20100630
  Receipt Date: 20100628
  Transmission Date: 20101027
  Serious: Yes (Death, Hospitalization)
  Sender: FDA-Public Use
  Company Number: A0867420A

PATIENT
  Age: 87 Year
  Sex: Male

DRUGS (5)
  1. ADVAIR DISKUS 100/50 [Suspect]
     Indication: ASTHMA
     Dosage: 1PUFF TWICE PER DAY
     Route: 055
     Dates: start: 20050101
  2. BONIVA [Concomitant]
  3. ALBUTEROL [Concomitant]
  4. COUMADIN [Concomitant]
  5. VITAMINS [Concomitant]

REACTIONS (1)
  - RESPIRATORY FAILURE [None]
